FAERS Safety Report 21283878 (Version 1)
Quarter: 2022Q3

REPORT INFORMATION
  Report Type: Report from Study
  Country: US (occurrence: None)
  Receive Date: 20220901
  Receipt Date: 20220901
  Transmission Date: 20221027
  Serious: Yes (Other)
  Sender: FDA-Public Use
  Company Number: 2022A300679

PATIENT
  Sex: Female

DRUGS (2)
  1. LYNPARZA [Suspect]
     Active Substance: OLAPARIB
     Indication: Malignant peritoneal neoplasm
     Route: 048
     Dates: start: 20220712
  2. LYNPARZA [Suspect]
     Active Substance: OLAPARIB
     Indication: Retroperitoneal cancer
     Route: 048
     Dates: start: 20220712

REACTIONS (2)
  - Full blood count decreased [Unknown]
  - Dyspnoea [Unknown]
